FAERS Safety Report 7423371-0 (Version None)
Quarter: 2011Q2

REPORT INFORMATION
  Report Type: 
  Country: None (occurrence: None)
  Receive Date: 20110419
  Receipt Date: 20110406
  Transmission Date: 20111010
  Serious: Yes (Other)
  Sender: FDA-Public Use
  Company Number: PHHY2011FR30090

PATIENT
  Sex: Female

DRUGS (2)
  1. FEMARA [Suspect]
     Indication: BREAST CANCER
     Dosage: 2.5 MG, UNK
  2. ANTIHYPERTENSIVES [Concomitant]

REACTIONS (7)
  - CYSTITIS [None]
  - SUFFOCATION FEELING [None]
  - EYE IRRITATION [None]
  - HOT FLUSH [None]
  - MUSCULOSKELETAL PAIN [None]
  - MACULAR DEGENERATION [None]
  - CHEST PAIN [None]
